FAERS Safety Report 18876168 (Version 1)
Quarter: 2021Q1

REPORT INFORMATION
  Report Type: Spontaneous
  Country: US (occurrence: US)
  Receive Date: 20210210
  Receipt Date: 20210210
  Transmission Date: 20210420
  Serious: No
  Sender: FDA-Public Use
  Company Number: US-009507513-2101USA013423

PATIENT
  Age: 56 Year
  Sex: Male

DRUGS (8)
  1. PROVENTIL [Suspect]
     Active Substance: ALBUTEROL
     Indication: BRONCHIAL HYPERREACTIVITY
  2. DEXTROMETHORPHAN [Concomitant]
     Active Substance: DEXTROMETHORPHAN
     Indication: PNEUMONIA
  3. PROVENTIL [Suspect]
     Active Substance: ALBUTEROL
     Indication: PNEUMONIA
     Route: 055
  4. DOXYCYCLINE. [Concomitant]
     Active Substance: DOXYCYCLINE
     Indication: PNEUMONIA
  5. DOXYCYCLINE. [Concomitant]
     Active Substance: DOXYCYCLINE
     Indication: BRONCHIAL HYPERREACTIVITY
  6. CORTICOSTEROIDS (UNSPECIFIED) [Concomitant]
     Active Substance: UNSPECIFIED INGREDIENT
     Indication: BRONCHIAL HYPERREACTIVITY
  7. DEXTROMETHORPHAN [Concomitant]
     Active Substance: DEXTROMETHORPHAN
     Indication: BRONCHIAL HYPERREACTIVITY
  8. CORTICOSTEROIDS (UNSPECIFIED) [Concomitant]
     Active Substance: UNSPECIFIED INGREDIENT
     Indication: PNEUMONIA

REACTIONS (1)
  - Product use in unapproved indication [Unknown]
